FAERS Safety Report 5072818-6 (Version None)
Quarter: 2006Q3

REPORT INFORMATION
  Report Type: 
  Country: None (occurrence: None)
  Receive Date: 20060802
  Receipt Date: 20060718
  Transmission Date: 20061208
  Serious: Yes (Hospitalization)
  Sender: FDA-Public Use
  Company Number: DEU-2006-0002335

PATIENT
  Age: 58 Year
  Sex: Female
  Weight: 82 kg

DRUGS (1)
  1. OXYCODONE HCL [Suspect]
     Indication: BACK PAIN
     Dosage: 80 MG DAILY ORAL
     Route: 048
     Dates: start: 20060413

REACTIONS (2)
  - INTERVERTEBRAL DISC PROTRUSION [None]
  - NERVE ROOT COMPRESSION [None]
